FAERS Safety Report 10202175 (Version 1)
Quarter: 2014Q2

REPORT INFORMATION
  Report Type: Spontaneous
  Country: FR (occurrence: FR)
  Receive Date: 20140528
  Receipt Date: 20140528
  Transmission Date: 20141212
  Serious: Yes (Hospitalization)
  Sender: FDA-Public Use
  Company Number: FR-GLAXOSMITHKLINE-B0995078A

PATIENT
  Age: 74 Year
  Sex: Male

DRUGS (9)
  1. ZELITREX [Suspect]
     Indication: PRODUCT USED FOR UNKNOWN INDICATION
     Dosage: 500MG TWICE PER DAY
     Route: 048
     Dates: start: 201403, end: 201404
  2. WELLVONE [Suspect]
     Indication: PRODUCT USED FOR UNKNOWN INDICATION
     Route: 048
     Dates: start: 20140410
  3. RITUXIMAB [Suspect]
     Indication: LYMPHOCYTOSIS
     Route: 042
     Dates: start: 20140310
  4. BENDAMUSTINE [Suspect]
     Indication: LYMPHOCYTOSIS
     Route: 065
     Dates: start: 20140310
  5. BACTRIM [Suspect]
     Indication: PRODUCT USED FOR UNKNOWN INDICATION
     Route: 048
     Dates: start: 201403, end: 20140410
  6. LEDERFOLINE [Suspect]
     Indication: PRODUCT USED FOR UNKNOWN INDICATION
     Dosage: 25MG THREE TIMES PER WEEK
     Route: 048
     Dates: start: 201403, end: 20140410
  7. ALPHAGAN [Concomitant]
     Route: 065
     Dates: start: 201403
  8. PRIMPERAN [Concomitant]
     Route: 065
     Dates: start: 201403
  9. NEULASTA [Concomitant]
     Dosage: 6MG SINGLE DOSE
     Route: 058
     Dates: start: 20140314

REACTIONS (4)
  - Drug reaction with eosinophilia and systemic symptoms [Recovered/Resolved]
  - Tubulointerstitial nephritis [Recovered/Resolved]
  - Pyrexia [Recovered/Resolved]
  - Eosinophilia [Recovered/Resolved]
